FAERS Safety Report 10484440 (Version 1)
Quarter: 2014Q3

REPORT INFORMATION
  Report Type: Spontaneous
  Country: ES (occurrence: ES)
  Receive Date: 20140930
  Receipt Date: 20140930
  Transmission Date: 20150326
  Serious: Yes (Life-Threatening, Other)
  Sender: FDA-Public Use
  Company Number: ES-MYLANLABS-2014M1005980

PATIENT

DRUGS (2)
  1. SALBUTAMOL [Concomitant]
     Active Substance: ALBUTEROL
     Indication: ASTHMA
     Route: 065
  2. TIMOLOL [Suspect]
     Active Substance: TIMOLOL
     Dosage: DAILY, INTURRUPTED FOR 8 DAYS
     Route: 047

REACTIONS (2)
  - Asthma [Unknown]
  - Loss of consciousness [Unknown]
